FAERS Safety Report 25762221 (Version 1)
Quarter: 2025Q3

REPORT INFORMATION
  Report Type: Spontaneous
  Country: US (occurrence: None)
  Receive Date: 20250904
  Receipt Date: 20250904
  Transmission Date: 20251020
  Serious: No
  Sender: FDA-CTU
  Company Number: None

PATIENT
  Sex: Female

DRUGS (1)
  1. DROXIDOPA [Suspect]
     Active Substance: DROXIDOPA
     Indication: Hypotension
     Dosage: 200 MG 3 TIMES A DAY ORAL
     Route: 048
     Dates: start: 20250815

REACTIONS (3)
  - Dizziness [None]
  - Dizziness [None]
  - Loss of consciousness [None]
